FAERS Safety Report 23757966 (Version 3)
Quarter: 2024Q2

REPORT INFORMATION
  Report Type: Spontaneous
  Country: US (occurrence: US)
  Receive Date: 20240418
  Receipt Date: 20240513
  Transmission Date: 20240716
  Serious: No
  Sender: FDA-Public Use
  Company Number: US-Calliditas-2024CAL00588

PATIENT
  Age: 71 Year
  Sex: Male
  Weight: 75.7 kg

DRUGS (2)
  1. TARPEYO [Suspect]
     Active Substance: BUDESONIDE
     Indication: IgA nephropathy
     Dosage: 16MG (4MG CAPSULES) ONCE DAILY
     Route: 048
     Dates: start: 20240221, end: 20240323
  2. LASIX [Concomitant]
     Active Substance: FUROSEMIDE

REACTIONS (3)
  - Peripheral swelling [Recovered/Resolved]
  - Skin discolouration [Recovered/Resolved]
  - Hypertension [Not Recovered/Not Resolved]

NARRATIVE: CASE EVENT DATE: 20240325
